FAERS Safety Report 9164409 (Version 1)
Quarter: 2013Q1

REPORT INFORMATION
  Report Type: Spontaneous
  Country: US (occurrence: None)
  Receive Date: 20130313
  Receipt Date: 20130313
  Transmission Date: 20140127
  Serious: Yes (Other)
  Sender: FDA-Public Use
  Company Number: None

PATIENT
  Age: 66 Year
  Sex: Male

DRUGS (2)
  1. AMIODARONE HYDROCHLORIDE [Suspect]
     Dosage: 150MG 1 X  040
     Dates: start: 20120411
  2. AMIODARONE HYDROCHLORIDE [Suspect]
     Dosage: 900 MG CONTINUOUS 041
     Dates: start: 20120411

REACTIONS (1)
  - Infusion site phlebitis [None]
